FAERS Safety Report 8579796-3 (Version None)
Quarter: 2012Q3

REPORT INFORMATION
  Report Type: 
  Country: None (occurrence: None)
  Receive Date: 20120808
  Receipt Date: 20120730
  Transmission Date: 20120928
  Serious: Yes (Hospitalization)
  Sender: FDA-Public Use
  Company Number: FR-ASTRAZENECA-2012SE55074

PATIENT
  Age: 29253 Day
  Sex: Female

DRUGS (16)
  1. GLUCOPHAGE [Suspect]
     Route: 048
     Dates: end: 20120604
  2. CRESTOR [Suspect]
     Route: 048
     Dates: end: 20120604
  3. CRESTOR [Suspect]
     Route: 048
     Dates: start: 20120606
  4. ANTIVITAMIN K [Suspect]
     Route: 065
  5. ASPIRIN [Concomitant]
     Route: 048
  6. ACETAMINOPHEN [Concomitant]
     Route: 048
     Dates: start: 20120518
  7. PANTOPRAZOLE [Concomitant]
     Route: 048
     Dates: start: 20120520
  8. GLUCOPHAGE [Suspect]
     Route: 048
     Dates: start: 20120606
  9. VALACICLOVIR [Suspect]
     Route: 048
     Dates: start: 20120530, end: 20120604
  10. ATACAND [Concomitant]
     Route: 048
  11. PREVISCAN [Concomitant]
     Route: 048
     Dates: start: 20120531
  12. NICARDIPINE HCL [Concomitant]
     Route: 048
     Dates: start: 20120520
  13. BISOPROLOL FUMARATE [Concomitant]
     Route: 048
     Dates: start: 20120530
  14. LEVOTHYROXINE SODIUM [Concomitant]
     Route: 048
  15. PREVISCAN [Concomitant]
     Route: 048
     Dates: end: 20120528
  16. REPAGLINIDE [Concomitant]
     Route: 048

REACTIONS (3)
  - RENAL FAILURE ACUTE [None]
  - OVERDOSE [None]
  - ORTHOSTATIC HYPOTENSION [None]
